FAERS Safety Report 5369006-2 (Version None)
Quarter: 2007Q2

REPORT INFORMATION
  Report Type: 
  Country: None (occurrence: None)
  Receive Date: 20070625
  Receipt Date: 20061117
  Transmission Date: 20071010
  Serious: No
  Sender: FDA-Public Use
  Company Number: US-ASTRAZENECA-2006UW24772

PATIENT
  Age: 45 Year
  Sex: Female
  Weight: 85.7 kg

DRUGS (1)
  1. CRESTOR [Suspect]
     Indication: BLOOD CHOLESTEROL INCREASED
     Route: 048
     Dates: start: 20060901, end: 20061117

REACTIONS (2)
  - CHEST PAIN [None]
  - ODYNOPHAGIA [None]
